FAERS Safety Report 10215844 (Version 2)
Quarter: 2014Q2

REPORT INFORMATION
  Report Type: Spontaneous
  Country: US (occurrence: US)
  Receive Date: 20140604
  Receipt Date: 20140624
  Transmission Date: 20141212
  Serious: No
  Sender: FDA-Public Use
  Company Number: US-009507513-1405USA014562

PATIENT
  Sex: Male

DRUGS (3)
  1. DULERA [Suspect]
     Indication: ASTHMA
     Dosage: TWO PUFFS, BID
     Route: 055
     Dates: start: 2012
  2. AEROBID [Concomitant]
     Dosage: UNK
  3. SINGULAIR [Concomitant]
     Dosage: UNK, QD

REACTIONS (11)
  - Drug effect variable [Unknown]
  - Drug ineffective [Unknown]
  - Dyspnoea [Recovering/Resolving]
  - Underdose [Unknown]
  - Product quality issue [Unknown]
  - Nasal disorder [Recovering/Resolving]
  - Gingivitis [Unknown]
  - Erythema [Unknown]
  - Local swelling [Unknown]
  - Pruritus [Unknown]
  - Scab [Unknown]
